FAERS Safety Report 7763589-0 (Version None)
Quarter: 2011Q3

REPORT INFORMATION
  Report Type: 
  Country: None (occurrence: None)
  Receive Date: 20110920
  Receipt Date: 20110304
  Transmission Date: 20111222
  Serious: No
  Sender: FDA-Public Use
  Company Number: US-BAYER-2011-020947

PATIENT
  Age: 62 Year
  Sex: Male

DRUGS (1)
  1. MAGNEVIST [Suspect]
     Indication: ANGIOGRAM
     Dosage: 30 CC, POWER INJECTOR USED, LINE FLUSHED
     Dates: start: 20110225, end: 20110225

REACTIONS (2)
  - URTICARIA [None]
  - DYSPNOEA [None]
